FAERS Safety Report 10923772 (Version 1)
Quarter: 2015Q1

REPORT INFORMATION
  Report Type: Spontaneous
  Country: GB (occurrence: GB)
  Receive Date: 20150318
  Receipt Date: 20150318
  Transmission Date: 20150721
  Serious: Yes (Other)
  Sender: FDA-Public Use
  Company Number: GB-AUROBINDO-AUR-APL-2015-02149

PATIENT
  Age: 17 Year
  Sex: Female

DRUGS (1)
  1. PAROXETINE [Suspect]
     Active Substance: PAROXETINE\PAROXETINE HYDROCHLORIDE
     Indication: PRODUCT USED FOR UNKNOWN INDICATION
     Dosage: 10-30 MG
     Route: 065

REACTIONS (9)
  - Decreased interest [Unknown]
  - Impulsive behaviour [Unknown]
  - Vertigo [Unknown]
  - Legal problem [Unknown]
  - Alcoholism [Unknown]
  - Suicidal behaviour [Unknown]
  - Antisocial behaviour [Unknown]
  - Loss of consciousness [Unknown]
  - Aggression [Unknown]
